FAERS Safety Report 6510009-X (Version None)
Quarter: 2009Q4

REPORT INFORMATION
  Report Type: 
  Country: None (occurrence: None)
  Receive Date: 20091222
  Receipt Date: 20090831
  Transmission Date: 20100525
  Serious: No
  Sender: FDA-Public Use
  Company Number: US-ABBOTT-09P-163-0595094-00

PATIENT
  Sex: Female
  Weight: 68.1 kg

DRUGS (5)
  1. OMNICEF [Suspect]
     Indication: BRONCHITIS
     Route: 048
     Dates: start: 20090826
  2. MULTIDOPHILUS 12 [Concomitant]
     Indication: PROBIOTIC THERAPY
  3. ACIDOPHILUS FOR LIFE (PB8) [Concomitant]
     Indication: PROBIOTIC THERAPY
  4. SOCKEYE SALMON OIL [Concomitant]
     Indication: SUPPLEMENTATION THERAPY
  5. TRAZODONE HCL [Concomitant]
     Indication: INSOMNIA
     Route: 048

REACTIONS (2)
  - PAIN IN EXTREMITY [None]
  - TENDONITIS [None]
